FAERS Safety Report 18207309 (Version 1)
Quarter: 2020Q3

REPORT INFORMATION
  Report Type: Spontaneous
  Country: US (occurrence: US)
  Receive Date: 20200828
  Receipt Date: 20200828
  Transmission Date: 20201103
  Serious: No
  Sender: FDA-Public Use
  Company Number: US-PFIZER INC-2020332802

PATIENT
  Age: 50 Year
  Sex: Male

DRUGS (1)
  1. INLYTA [Suspect]
     Active Substance: AXITINIB
     Indication: ILLNESS
     Dosage: 5 MG, 2X/DAY (1 TAB BY MOUTH EVERY 12HOURS)
     Route: 048

REACTIONS (1)
  - Neoplasm progression [Unknown]
